FAERS Safety Report 16634059 (Version 1)
Quarter: 2019Q3

REPORT INFORMATION
  Report Type: Report from Study
  Country: US (occurrence: US)
  Receive Date: 20190725
  Receipt Date: 20190725
  Transmission Date: 20191004
  Serious: Yes (Hospitalization)
  Sender: FDA-Public Use
  Company Number: US-UCBSA-8044437

PATIENT
  Age: 53 Year
  Sex: Female
  Weight: 85 kg

DRUGS (12)
  1. ENALAPRIL [Concomitant]
     Active Substance: ENALAPRIL
     Indication: HYPERTENSION
     Dosage: 20 MG, 2X/DAY (BID)
     Route: 048
     Dates: start: 2004, end: 20090312
  2. FUROSEMIDE. [Concomitant]
     Active Substance: FUROSEMIDE
     Indication: HYPERTENSION
     Dosage: 40 MG, 2X/DAY (BID)
     Route: 048
     Dates: start: 2007, end: 20090312
  3. CERTOLIZUMAB PEGOL VS PLACEBO [Suspect]
     Active Substance: CERTOLIZUMAB PEGOL
     Dosage: 200 MG, EV 2 WEEKS(QOW)
     Route: 058
     Dates: start: 20090218, end: 20090312
  4. LABETALOL [Concomitant]
     Active Substance: LABETALOL\LABETALOL HYDROCHLORIDE
     Indication: HYPERTENSION
     Dosage: 100 MG, 2X/DAY (BID)
     Route: 048
     Dates: start: 2008, end: 20090317
  5. NIFEDICAL XL [Concomitant]
     Active Substance: NIFEDIPINE
     Indication: HYPERTENSION
     Dosage: 60 MG, 2X/DAY (BID)
     Route: 048
     Dates: start: 2005, end: 20090312
  6. DIPHENHYDRAMINE. [Concomitant]
     Active Substance: DIPHENHYDRAMINE
     Indication: SLEEP DISORDER
     Dosage: 50 MG, AS NEEDED (PRN)
     Route: 048
     Dates: start: 2005
  7. WELLBUTRIN [Concomitant]
     Active Substance: BUPROPION HYDROCHLORIDE
     Indication: DEPRESSION
     Dosage: 150 MG, 2X/DAY (BID)
     Route: 048
     Dates: start: 200802
  8. PREDNISONE. [Concomitant]
     Active Substance: PREDNISONE
     Indication: THROMBOCYTOPENIA
     Dosage: DOSE FREQ.: DAILY
     Route: 048
     Dates: start: 20090406
  9. CERTOLIZUMAB PEGOL VS PLACEBO [Suspect]
     Active Substance: CERTOLIZUMAB PEGOL
     Indication: RHEUMATOID ARTHRITIS
     Dosage: 400 MG, EV 2 WEEKS(QOW)
     Route: 058
     Dates: start: 20090107, end: 20090205
  10. FOLIC ACID. [Concomitant]
     Active Substance: FOLIC ACID
     Indication: RHEUMATOID ARTHRITIS
     Dosage: DOSE FREQ.: DAILY
     Route: 048
     Dates: start: 20080828, end: 20090312
  11. DILANTIN [Concomitant]
     Active Substance: PHENYTOIN
     Indication: SEIZURE
     Dosage: 100 MG, 3X/DAY (TID)
     Route: 048
     Dates: start: 2001
  12. METHOTREXATE. [Concomitant]
     Active Substance: METHOTREXATE
     Indication: RHEUMATOID ARTHRITIS
     Dosage: 15 MG, WEEKLY (QW)
     Route: 048
     Dates: start: 20081102, end: 20090312

REACTIONS (4)
  - Pancytopenia [Recovered/Resolved]
  - Acute kidney injury [Recovered/Resolved]
  - Gastrointestinal haemorrhage [Recovered/Resolved]
  - Toxicity to various agents [Recovered/Resolved]

NARRATIVE: CASE EVENT DATE: 20090312
